FAERS Safety Report 6044545-X (Version None)
Quarter: 2009Q1

REPORT INFORMATION
  Report Type: 
  Country: None (occurrence: None)
  Receive Date: 20090120
  Receipt Date: 20090112
  Transmission Date: 20090719
  Serious: Yes (Death)
  Sender: FDA-Public Use
  Company Number: US-SANOFI-SYNTHELABO-A03200900154

PATIENT
  Age: 43 Year
  Sex: Male

DRUGS (1)
  1. PLAVIX [Suspect]
     Indication: MYOCARDIAL INFARCTION
     Dosage: LOADING BOLUS DOSE UNK
     Route: 048
     Dates: start: 20081201

REACTIONS (1)
  - CORONARY ARTERY DISSECTION [None]
